FAERS Safety Report 21933998 (Version 8)
Quarter: 2024Q3

REPORT INFORMATION
  Report Type: Report from Study
  Country: US (occurrence: US)
  Receive Date: 20230201
  Receipt Date: 20240924
  Transmission Date: 20241017
  Serious: Yes (Other)
  Sender: NOVARTIS
  Company Number: US-002147023-NVSC2023US017884

PATIENT
  Age: 48 Year
  Sex: Female

DRUGS (3)
  1. COSENTYX [Suspect]
     Active Substance: SECUKINUMAB
     Indication: Psoriasis
     Dosage: 300 MG, QMO (INJECTION NOS)
     Route: 050
     Dates: start: 2022
  2. COSENTYX [Suspect]
     Active Substance: SECUKINUMAB
     Dosage: 300 MG, QMO (INJECTION NOS)
     Route: 050
     Dates: start: 20230124
  3. COSENTYX [Suspect]
     Active Substance: SECUKINUMAB
     Dosage: 300 MG, QMO (THIGH) IN 2024 (INJECTION NOS)
     Route: 050
     Dates: start: 2024

REACTIONS (15)
  - Cellulitis [Unknown]
  - Rash [Unknown]
  - Injection site pain [Unknown]
  - Injection site bruising [Unknown]
  - Injection site mass [Recovered/Resolved]
  - Skin reaction [Unknown]
  - Psoriasis [Unknown]
  - Scab [Unknown]
  - Skin exfoliation [Unknown]
  - Wrong technique in product usage process [Unknown]
  - Incorrect dose administered [Unknown]
  - Device ineffective [Unknown]
  - Device difficult to use [Unknown]
  - Product prescribing issue [Unknown]
  - Accidental exposure to product [Unknown]

NARRATIVE: CASE EVENT DATE: 20230124
